FAERS Safety Report 4432620-2 (Version None)
Quarter: 2004Q3

REPORT INFORMATION
  Report Type: 
  Country: None (occurrence: None)
  Receive Date: 20040823
  Receipt Date: 20040812
  Transmission Date: 20050211
  Serious: Yes (Hospitalization)
  Sender: FDA-Public Use
  Company Number: UKP04000305

PATIENT
  Sex: Female

DRUGS (2)
  1. ACTONEL(RISEDRONATE SODUM) TABLET, 35MG [Suspect]
     Indication: OSTEOPOROSIS
     Dosage: 35 MG, 2 /WEEK, ORAL
     Route: 048
  2. CALCIUM [Concomitant]

REACTIONS (5)
  - FATIGUE [None]
  - HERPES ZOSTER [None]
  - HYPERCALCAEMIA [None]
  - MEDICATION ERROR [None]
  - RASH [None]
